FAERS Safety Report 18810109 (Version 1)
Quarter: 2021Q1

REPORT INFORMATION
  Report Type: Spontaneous
  Country: US (occurrence: US)
  Receive Date: 20210129
  Receipt Date: 20210129
  Transmission Date: 20210419
  Serious: Yes (Life-Threatening, Other)
  Sender: FDA-Public Use
  Company Number: US-BAYER-2021-033411

PATIENT
  Age: 70 Year
  Sex: Female

DRUGS (2)
  1. ALKA?SELTZER PLUS DAY NON?DROWSY COLD AND FLU FORMULA [Suspect]
     Active Substance: ACETAMINOPHEN\DEXTROMETHORPHAN HYDROBROMIDE\PHENYLEPHRINE HYDROCHLORIDE
     Indication: NASOPHARYNGITIS
  2. ALKA?SELTZER PLUS DAY NON?DROWSY COLD AND FLU FORMULA [Suspect]
     Active Substance: ACETAMINOPHEN\DEXTROMETHORPHAN HYDROBROMIDE\PHENYLEPHRINE HYDROCHLORIDE
     Indication: ALLERGIC RESPIRATORY SYMPTOM
     Dosage: 1 DF, QD
     Route: 048
     Dates: start: 20210118, end: 20210118

REACTIONS (2)
  - Foreign body in throat [None]
  - Choking [Recovered/Resolved]

NARRATIVE: CASE EVENT DATE: 20210118
